FAERS Safety Report 21326430 (Version 2)
Quarter: 2022Q4

REPORT INFORMATION
  Report Type: Spontaneous
  Country: US (occurrence: US)
  Receive Date: 20220913
  Receipt Date: 20221012
  Transmission Date: 20230113
  Serious: Yes (Other)
  Sender: FDA-Public Use
  Company Number: US-BRISTOL-MYERS SQUIBB COMPANY-2022-102651

PATIENT
  Age: 63 Year
  Sex: Male

DRUGS (1)
  1. REVLIMID [Suspect]
     Active Substance: LENALIDOMIDE
     Indication: Plasma cell myeloma
     Dosage: OTHERS
     Route: 048
     Dates: start: 202207

REACTIONS (8)
  - Gastrooesophageal reflux disease [Unknown]
  - Thrombosis [Unknown]
  - Rash macular [Unknown]
  - Muscular weakness [Unknown]
  - Balance disorder [Unknown]
  - Weight decreased [Unknown]
  - Dehydration [Unknown]
  - Vomiting [Unknown]

NARRATIVE: CASE EVENT DATE: 20220908
